FAERS Safety Report 25483320 (Version 1)
Quarter: 2025Q2

REPORT INFORMATION
  Report Type: Spontaneous
  Country: US (occurrence: US)
  Receive Date: 20250626
  Receipt Date: 20250626
  Transmission Date: 20250716
  Serious: Yes (Other)
  Sender: CB FLEET
  Company Number: US-PRESTIGE-202506-US-001764

PATIENT
  Age: 58 Year
  Sex: Female

DRUGS (1)
  1. MONISTAT TIOCONAZOLE 1 [Suspect]
     Active Substance: TIOCONAZOLE
     Indication: Fungal infection
     Route: 067

REACTIONS (12)
  - Foreign body in reproductive tract [Recovered/Resolved]
  - Vulvovaginal pain [Recovered/Resolved]
  - Vulvovaginal burning sensation [Recovered/Resolved]
  - Vulvovaginal pruritus [Recovered/Resolved]
  - Insomnia [Recovered/Resolved]
  - Genital blister [Recovered/Resolved]
  - Vulvovaginal erythema [Recovered/Resolved]
  - Nausea [Recovered/Resolved]
  - Vulvovaginitis [Not Recovered/Not Resolved]
  - Discomfort [Not Recovered/Not Resolved]
  - Dermatitis contact [Not Recovered/Not Resolved]
  - Intentional product misuse [None]
